FAERS Safety Report 4901996-1 (Version None)
Quarter: 2006Q1

REPORT INFORMATION
  Report Type: 
  Country: None (occurrence: None)
  Receive Date: 20060206
  Receipt Date: 20060123
  Transmission Date: 20060701
  Serious: Yes (Death, Other)
  Sender: FDA-Public Use
  Company Number: DE-BRISTOL-MYERS SQUIBB COMPANY-13272893

PATIENT
  Age: 56 Year
  Sex: Female

DRUGS (1)
  1. METHOTREXATE [Suspect]
     Indication: RHEUMATOID ARTHRITIS

REACTIONS (7)
  - ERYSIPELAS [None]
  - MUCOSAL INFLAMMATION [None]
  - ORAL SOFT TISSUE DISORDER [None]
  - OVERDOSE [None]
  - PANCYTOPENIA [None]
  - SEPSIS [None]
  - SKIN LESION [None]
